FAERS Safety Report 6520286-7 (Version None)
Quarter: 2009Q4

REPORT INFORMATION
  Report Type: 
  Country: None (occurrence: None)
  Receive Date: 20091229
  Receipt Date: 20091216
  Transmission Date: 20100525
  Serious: Yes (Hospitalization, Other)
  Sender: FDA-Public Use
  Company Number: PHHY2009IR56022

PATIENT
  Age: 47 Year
  Sex: Male

DRUGS (13)
  1. CYCLOSPORINE [Suspect]
     Indication: HEART TRANSPLANT
     Dosage: 125 MG, BID
  2. PREDNISOLONE [Suspect]
     Indication: HEART TRANSPLANT
     Dosage: 15 MG, QD
  3. MYCOPHENOLATE MOFETIL [Suspect]
     Indication: HEART TRANSPLANT
     Dosage: 500 MG, BID
  4. ASPIRIN [Concomitant]
     Dosage: 80 MG, QD
  5. ATORVASTATIN CALCIUM [Concomitant]
     Dosage: 20 MG, QD
  6. VALGANCICLOVIR HCL [Concomitant]
     Dosage: 450 MG, BID
  7. CO-TRIMOXAZOLE [Concomitant]
     Dosage: 400 MG, BID
  8. OMEPRAZOLE [Concomitant]
     Dosage: 20 MG, QD
  9. ALENDRONATE SODIUM [Concomitant]
     Dosage: 10 MG, QD
  10. FOLIC ACID [Concomitant]
     Dosage: 5 MG, QD
  11. CALCIUM CARBONATE [Concomitant]
  12. FERROUS SULFATE TAB [Concomitant]
  13. MULTI-VITAMINS [Concomitant]

REACTIONS (13)
  - ASTHENIA [None]
  - CYTOMEGALOVIRUS INFECTION [None]
  - DYSPNOEA [None]
  - EXERCISE TOLERANCE DECREASED [None]
  - HAEMOPTYSIS [None]
  - HEART TRANSPLANT REJECTION [None]
  - HUMAN HERPESVIRUS 8 INFECTION [None]
  - HYPERHIDROSIS [None]
  - KAPOSI'S SARCOMA [None]
  - LUNG INFILTRATION [None]
  - PRODUCTIVE COUGH [None]
  - SINUS TACHYCARDIA [None]
  - SKIN PLAQUE [None]
